FAERS Safety Report 14543178 (Version 6)
Quarter: 2018Q4

REPORT INFORMATION
  Report Type: Report from Study
  Country: JP (occurrence: JP)
  Receive Date: 20180216
  Receipt Date: 20181109
  Transmission Date: 20190204
  Serious: Yes (Death, Other)
  Sender: FDA-Public Use
  Company Number: JP-BRISTOL-MYERS SQUIBB COMPANY-BMS-2018-012590

PATIENT
  Age: 63 Year
  Sex: Male
  Weight: 46 kg

DRUGS (14)
  1. IPILIMUMAB [Suspect]
     Active Substance: IPILIMUMAB
     Indication: PRODUCT USED FOR UNKNOWN INDICATION
     Dosage: 3 MG/KG, UNK
     Route: 041
     Dates: start: 20161101, end: 20161101
  2. ITRIZOLE [Concomitant]
     Active Substance: ITRACONAZOLE
     Indication: PROPHYLAXIS
     Dosage: 100 MG, START DATE: BEFORE THE START OF IPILIMUMAB
     Route: 048
  3. MYSLEE [Concomitant]
     Active Substance: ZOLPIDEM TARTRATE
     Indication: PRODUCT USED FOR UNKNOWN INDICATION
     Dosage: 10 MG, START DATE: BEFORE THE START OF IPILIMUMAB
     Route: 048
  4. NAUZELIN [Concomitant]
     Active Substance: DOMPERIDONE
     Indication: MALIGNANT MELANOMA
     Dosage: 30 MG, START DATE: BEFORE THE START OF IPILIMUMAB
     Route: 048
  5. MAGNESIUM OXIDE. [Concomitant]
     Active Substance: MAGNESIUM OXIDE
     Indication: PRODUCT USED FOR UNKNOWN INDICATION
     Dosage: 990 MG, START DATE: BEFORE THE START OF IPILIMUMAB
     Route: 048
  6. AMITIZA [Concomitant]
     Active Substance: LUBIPROSTONE
     Indication: PRODUCT USED FOR UNKNOWN INDICATION
     Dosage: 24 ?G, START DATE: BEFORE THE START OF IPILIMUMAB
     Route: 048
  7. OXYCONTIN [Concomitant]
     Active Substance: OXYCODONE HYDROCHLORIDE
     Indication: MALIGNANT MELANOMA
     Dosage: 40 MG, START DATE: BEFORE THE START OF IPILIMUMAB
     Route: 065
  8. CEFZON                             /01130201/ [Concomitant]
     Indication: PROPHYLAXIS
     Dosage: 300 MG, UNK
     Route: 048
     Dates: start: 20160819, end: 20160826
  9. IPILIMUMAB [Suspect]
     Active Substance: IPILIMUMAB
     Indication: MALIGNANT MELANOMA
     Dosage: 3 MG/KG, UNK
     Route: 041
     Dates: start: 20160809, end: 20160809
  10. VEGETAMIN B [Concomitant]
     Active Substance: CHLORPROMAZINE HYDROCHLORIDE\PHENOBARBITAL\PROMETHAZINE
     Indication: PRODUCT USED FOR UNKNOWN INDICATION
     Dosage: 1 DF, START DATE: BEFORE THE START OF IPILIMUMAB
     Route: 048
  11. REBAMIPIDE [Concomitant]
     Active Substance: REBAMIPIDE
     Indication: MALIGNANT MELANOMA
     Dosage: 300 MG, START DATE: BEFORE THE START OF IPILIMUMAB
     Route: 048
  12. CALONAL [Concomitant]
     Active Substance: ACETAMINOPHEN
     Indication: MALIGNANT MELANOMA
     Dosage: 1200 MG, START DATE: BEFORE THE START OF IPILIMUMAB
     Route: 048
  13. BAKTAR [Concomitant]
     Active Substance: SULFAMETHOXAZOLE\TRIMETHOPRIM
     Indication: PRODUCT USED FOR UNKNOWN INDICATION
     Dosage: START DATE: BEFORE THE START OF IPILIMUMAB
     Route: 065
  14. AMLODIPINE                         /00972402/ [Concomitant]
     Active Substance: AMLODIPINE BESYLATE
     Indication: PRODUCT USED FOR UNKNOWN INDICATION
     Dosage: 5 MG, START DATE: BEFORE THE START OF IPILIMUMAB
     Route: 048

REACTIONS (5)
  - Pneumonia bacterial [Recovering/Resolving]
  - Affect lability [Unknown]
  - Nausea [Recovering/Resolving]
  - Tonsillitis [Recovered/Resolved]
  - Malignant neoplasm progression [Fatal]

NARRATIVE: CASE EVENT DATE: 20160819
